FAERS Safety Report 9413617 (Version 1)
Quarter: 2013Q3

REPORT INFORMATION
  Report Type: Spontaneous
  Country: FR (occurrence: FR)
  Receive Date: 20130722
  Receipt Date: 20130722
  Transmission Date: 20140515
  Serious: Yes (Other)
  Sender: FDA-Public Use
  Company Number: FR-009507513-1307FRA010982

PATIENT
  Age: 28 Year
  Sex: Female

DRUGS (4)
  1. NASONEX [Suspect]
     Indication: SEASONAL ALLERGY
     Route: 048
  2. MIZOLLEN [Suspect]
     Indication: SEASONAL ALLERGY
  3. OPTICRON [Suspect]
     Indication: SEASONAL ALLERGY
  4. VENTOLINE (ALBUTEROL) [Suspect]
     Indication: SEASONAL ALLERGY

REACTIONS (2)
  - Abortion induced [Unknown]
  - Exposure during pregnancy [Recovered/Resolved]
